FAERS Safety Report 11287313 (Version 1)
Quarter: 2015Q3

REPORT INFORMATION
  Report Type: Spontaneous
  Country: US (occurrence: US)
  Receive Date: 20150721
  Receipt Date: 20150721
  Transmission Date: 20151125
  Serious: No
  Sender: FDA-Public Use
  Company Number: US-JNJFOC-20150413414

PATIENT
  Age: 8 Month
  Sex: Male

DRUGS (1)
  1. SIMPONI [Suspect]
     Active Substance: GOLIMUMAB
     Indication: RHEUMATOID ARTHRITIS
     Dosage: PARENT DOSING: 50MG MONTHLY
     Route: 063
     Dates: start: 2012

REACTIONS (2)
  - Exposure during breast feeding [Unknown]
  - Rash generalised [Unknown]
